FAERS Safety Report 8623257-X (Version None)
Quarter: 2012Q3

REPORT INFORMATION
  Report Type: 
  Country: None (occurrence: None)
  Receive Date: 20120827
  Receipt Date: 20120816
  Transmission Date: 20120928
  Serious: No
  Sender: FDA-Public Use
  Company Number: US-BAYER-2012-084979

PATIENT
  Sex: Female

DRUGS (1)
  1. GADAVIST [Suspect]
     Dosage: UNK
     Dates: start: 20120816, end: 20120816

REACTIONS (4)
  - OCULAR HYPERAEMIA [None]
  - PRURITUS [None]
  - EYE SWELLING [None]
  - LIMB DISCOMFORT [None]
